FAERS Safety Report 7256092-8 (Version None)
Quarter: 2011Q1

REPORT INFORMATION
  Report Type: 
  Country: None (occurrence: None)
  Receive Date: 20110129
  Receipt Date: 20100601
  Transmission Date: 20110831
  Serious: No
  Sender: FDA-Public Use
  Company Number: US-ABBOTT-10P-163-0648653-00

PATIENT
  Age: 63 Year
  Sex: Female

DRUGS (8)
  1. HUMIRA [Suspect]
     Indication: CROHN'S DISEASE
     Dates: start: 20100301
  2. LISINOPRIL [Concomitant]
  3. GEODON [Concomitant]
     Dosage: 20MG IN AM AND 80MG AT BEDTIME
  4. SYNTHROID [Concomitant]
  5. TONOPTIC 0.5% [Concomitant]
  6. DIAZIDE HCTZ [Concomitant]
  7. IMURAN [Concomitant]
  8. TINAZAPAM [Concomitant]

REACTIONS (4)
  - INJURY ASSOCIATED WITH DEVICE [None]
  - DRUG DOSE OMISSION [None]
  - WRONG TECHNIQUE IN DRUG USAGE PROCESS [None]
  - INCORRECT DOSE ADMINISTERED [None]
